FAERS Safety Report 22033702 (Version 1)
Quarter: 2023Q1

REPORT INFORMATION
  Report Type: Spontaneous
  Country: US (occurrence: None)
  Receive Date: 20230222
  Receipt Date: 20230222
  Transmission Date: 20230417
  Serious: Yes (Life-Threatening, Hospitalization, Disabling)
  Sender: FDA-Public Use
  Company Number: None

PATIENT
  Age: 59 Year
  Sex: Male
  Weight: 79 kg

DRUGS (2)
  1. ERBITUX [Suspect]
     Active Substance: CETUXIMAB
     Indication: Squamous cell carcinoma
     Dosage: OTHER FREQUENCY : ONCE;?
     Route: 042
     Dates: start: 20230221, end: 20230221
  2. DOCETAXEL [Suspect]
     Active Substance: DOCETAXEL
     Dates: start: 20230221, end: 20230221

REACTIONS (4)
  - Dyspnoea [None]
  - Cardiac arrest [None]
  - Pulseless electrical activity [None]
  - Infusion related reaction [None]

NARRATIVE: CASE EVENT DATE: 20230221
